FAERS Safety Report 9924367 (Version 1)
Quarter: 2014Q1

REPORT INFORMATION
  Report Type: Spontaneous
  Country: US (occurrence: US)
  Receive Date: 20140226
  Receipt Date: 20140226
  Transmission Date: 20141002
  Serious: Yes (Hospitalization)
  Sender: FDA-Public Use
  Company Number: US-SUN PHARMACEUTICAL INDUSTRIES LTD-2014SUN00376

PATIENT
  Age: 75 Year
  Sex: Male

DRUGS (2)
  1. BACLOFEN [Suspect]
     Indication: PRODUCT USED FOR UNKNOWN INDICATION
     Dosage: 10 MG, TID
     Route: 065
  2. PERCOCET TABLET [Concomitant]
     Indication: PAIN
     Dosage: 1 DF, QID
     Route: 065

REACTIONS (3)
  - Toxicity to various agents [Recovered/Resolved]
  - Mental status changes [Recovered/Resolved]
  - Toxic encephalopathy [Recovered/Resolved]
